FAERS Safety Report 25151712 (Version 1)
Quarter: 2025Q2

REPORT INFORMATION
  Report Type: Spontaneous
  Country: AU (occurrence: AU)
  Receive Date: 20250402
  Receipt Date: 20250402
  Transmission Date: 20250717
  Serious: Yes (Other)
  Sender: GE HEALTHCARE
  Company Number: AU-GE HEALTHCARE-2025CSU003573

PATIENT
  Age: 19 Year
  Sex: Male
  Weight: 72 kg

DRUGS (1)
  1. OMNIPAQUE [Suspect]
     Active Substance: IOHEXOL
     Indication: Computerised tomogram
     Route: 042
     Dates: start: 20250217, end: 20250217

REACTIONS (3)
  - Feeling abnormal [Recovered/Resolved]
  - Burning sensation [Recovered/Resolved]
  - Dyspnoea [Recovered/Resolved]

NARRATIVE: CASE EVENT DATE: 20250217
